FAERS Safety Report 16100439 (Version 1)
Quarter: 2019Q1

REPORT INFORMATION
  Report Type: Spontaneous
  Country: US (occurrence: US)
  Receive Date: 20190321
  Receipt Date: 20190321
  Transmission Date: 20190418
  Serious: Yes (Other)
  Sender: FDA-Public Use
  Company Number: US-SA-2019SA074893

PATIENT
  Sex: Female

DRUGS (27)
  1. DICLOFENAC [Suspect]
     Active Substance: DICLOFENAC
     Dosage: UNK
  2. MAXIMUM STRENGTH BLUE EMU PAIN RELIEF BLU EMU [Suspect]
     Active Substance: TROLAMINE SALICYLATE
     Dosage: UNK
  3. MORPHINE SALT NOT SPECIFIED [Suspect]
     Active Substance: MORPHINE
     Dosage: UNK
  4. DIFLUNISAL. [Suspect]
     Active Substance: DIFLUNISAL
     Dosage: UNK
     Route: 065
  5. TOLMETIN [TOLMETIN SODIUM] [Suspect]
     Active Substance: TOLMETIN SODIUM
     Dosage: UNK
  6. TRAMADOL HYDROCHLORIDE. [Suspect]
     Active Substance: TRAMADOL HYDROCHLORIDE
     Dosage: UNK
  7. BENGAY ARTHRITIS PAIN RELIEVING [Suspect]
     Active Substance: MENTHOL\METHYL SALICYLATE
  8. NAPROXEN. [Suspect]
     Active Substance: NAPROXEN
     Dosage: UNK
     Route: 065
  9. KETOROLAC [Suspect]
     Active Substance: KETOROLAC\KETOROLAC TROMETHAMINE
     Dosage: UNK
  10. SAVELLA [Suspect]
     Active Substance: MILNACIPRAN HYDROCHLORIDE
     Dosage: UNK
  11. PERCOCET [Suspect]
     Active Substance: ACETAMINOPHEN\OXYCODONE HYDROCHLORIDE
     Dosage: UNK
     Route: 065
  12. CAPZASIN P CREME [Suspect]
     Active Substance: CAPSAICIN
     Dosage: UNK
  13. ACETYLSALICYLIC ACID [Suspect]
     Active Substance: ASPIRIN
     Dosage: UNK
  14. DICLOFENAC [Suspect]
     Active Substance: DICLOFENAC
     Dosage: UNK
  15. DULOXETINE HYDROCHLORIDE. [Suspect]
     Active Substance: DULOXETINE HYDROCHLORIDE
     Dosage: UNK
  16. CELECOXIB. [Suspect]
     Active Substance: CELECOXIB
     Dosage: UNK
  17. CODEINE [Suspect]
     Active Substance: CODEINE
     Dosage: UNK
  18. DEMEROL [Suspect]
     Active Substance: MEPERIDINE HYDROCHLORIDE
     Dosage: UNK
  19. MELOXICAM. [Suspect]
     Active Substance: MELOXICAM
     Dosage: UNK
  20. DICLOFENAC [Suspect]
     Active Substance: DICLOFENAC
     Dosage: UNK
  21. ASPERCREME NOS [Suspect]
     Active Substance: MENTHOL\TROLAMINE SALICYLATE
     Dosage: UNK
  22. HYDROMORPHONE HYDROCHLORIDE. [Suspect]
     Active Substance: HYDROMORPHONE HYDROCHLORIDE
  23. KETOROLAC [Suspect]
     Active Substance: KETOROLAC\KETOROLAC TROMETHAMINE
     Dosage: UNK
  24. ARNICARE [Suspect]
     Active Substance: HOMEOPATHICS
     Dosage: UNK
  25. OXAPROZIN. [Suspect]
     Active Substance: OXAPROZIN
     Dosage: UNK
  26. PREGABALIN. [Suspect]
     Active Substance: PREGABALIN
     Dosage: UNK
  27. INDOMETHACIN [INDOMETACIN] [Suspect]
     Active Substance: INDOMETHACIN
     Dosage: UNK

REACTIONS (16)
  - Dizziness [Unknown]
  - Hypothyroidism [Unknown]
  - Hypersensitivity [Unknown]
  - Abdominal distension [Unknown]
  - Vision blurred [Unknown]
  - Urticaria [None]
  - Adrenal insufficiency [Unknown]
  - Gastrooesophageal reflux disease [Unknown]
  - Abdominal pain upper [Unknown]
  - Migraine [Unknown]
  - Breath odour [Unknown]
  - Gastritis [Unknown]
  - Nausea [Unknown]
  - Drug ineffective [Unknown]
  - Serotonin syndrome [Unknown]
  - Urticaria [Unknown]
